FAERS Safety Report 20931606 (Version 1)
Quarter: 2022Q2

REPORT INFORMATION
  Report Type: Report from Study
  Country: DE (occurrence: DE)
  Receive Date: 20220608
  Receipt Date: 20220608
  Transmission Date: 20220721
  Serious: Yes (Congenital Anomaly)
  Sender: FDA-Public Use
  Company Number: DE-ABBVIE-22K-062-4423663-00

PATIENT
  Sex: Female
  Weight: 3.341 kg

DRUGS (2)
  1. LOPINAVIR\RITONAVIR [Suspect]
     Active Substance: LOPINAVIR\RITONAVIR
     Indication: Maternal exposure timing unspecified
     Route: 064
  2. EMTRICITABINE\TENOFOVIR DISOPROXIL FUMARATE [Suspect]
     Active Substance: EMTRICITABINE\TENOFOVIR DISOPROXIL FUMARATE
     Indication: Maternal exposure timing unspecified
     Route: 064

REACTIONS (2)
  - Brachydactyly [Unknown]
  - Foetal exposure during pregnancy [Unknown]
